FAERS Safety Report 17500441 (Version 1)
Quarter: 2020Q1

REPORT INFORMATION
  Report Type: Spontaneous
  Country: US (occurrence: US)
  Receive Date: 20200224
  Receipt Date: 20200224
  Transmission Date: 20200409
  Serious: Yes (Other)
  Sender: FDA-Public Use
  Company Number: None

PATIENT
  Age: 70 Year
  Sex: Female
  Weight: 68.04 kg

DRUGS (2)
  1. 5% SODIUM CHLORIDE OPHTHALMIC SOLUTION [Suspect]
     Active Substance: SODIUM CHLORIDE
     Indication: CORNEAL DYSTROPHY
     Dates: start: 20200121, end: 20200125
  2. MURO 128 5% NACL OPHTHALMIC OINTMENT [Concomitant]

REACTIONS (6)
  - Eyelid pain [None]
  - Eye irritation [None]
  - Product quality issue [None]
  - Drug ineffective [None]
  - Muscle spasms [None]
  - Foreign body sensation in eyes [None]

NARRATIVE: CASE EVENT DATE: 202001
